FAERS Safety Report 7413064-8 (Version None)
Quarter: 2011Q2

REPORT INFORMATION
  Report Type: 
  Country: None (occurrence: None)
  Receive Date: 20110405
  Receipt Date: 20110317
  Transmission Date: 20111010
  Serious: Yes (Death, Hospitalization)
  Sender: FDA-Public Use
  Company Number: 2011P1005339

PATIENT
  Age: 16 Year
  Sex: Male

DRUGS (6)
  1. METHAMPHETAMINE (NO PREF. NAME) [Suspect]
     Dosage: X1; PO
     Route: 048
  2. COCAINE (NO PREF. NAME) [Suspect]
  3. AMPHETAMINE SALTS (NO PREF. NAME) [Suspect]
     Dosage: X1; PO
     Route: 048
  4. METHYLENEDIOXYMETHAMPHETAMINE (MDMA) (NO PREF. NAME) [Suspect]
     Dosage: X1; PO
     Route: 048
  5. MARIJUANA (NO PREF. NAME) [Suspect]
  6. ACETAMINOPHEN/HYDROCODONE (NO PREF. NAME) [Suspect]
     Dosage: X1; PO
     Route: 048

REACTIONS (18)
  - TREMOR [None]
  - MUSCLE RIGIDITY [None]
  - PUPILLARY REFLEX IMPAIRED [None]
  - SEROTONIN SYNDROME [None]
  - DRUG ABUSE [None]
  - HAEMODIALYSIS [None]
  - UNRESPONSIVE TO STIMULI [None]
  - HYPERTHERMIA MALIGNANT [None]
  - DISSEMINATED INTRAVASCULAR COAGULATION [None]
  - MULTI-ORGAN FAILURE [None]
  - HEPATORENAL FAILURE [None]
  - RHABDOMYOLYSIS [None]
  - SHOCK [None]
  - HYPOGLYCAEMIA [None]
  - MULTIPLE DRUG OVERDOSE [None]
  - HYPOXIC-ISCHAEMIC ENCEPHALOPATHY [None]
  - FALL [None]
  - ACCIDENTAL DEATH [None]
